FAERS Safety Report 8229074 (Version 2)
Quarter: 2013Q3

REPORT INFORMATION
  Report Type: Spontaneous
  Country: US (occurrence: US)
  Receive Date: 20111104
  Receipt Date: 20130812
  Transmission Date: 20140515
  Serious: Yes (Hospitalization)
  Sender: FDA-Public Use
  Company Number: US-B.I. PHARMACEUTICALS,INC./RIDGEFIELD-2011-BP-23059BP

PATIENT
  Age: 85 Year
  Sex: Female

DRUGS (1)
  1. PRADAXA [Suspect]
     Indication: ATRIAL FIBRILLATION
     Dosage: 300 MG
     Route: 048
     Dates: end: 20110930

REACTIONS (5)
  - Faeces discoloured [Recovered/Resolved]
  - Intestinal mass [Unknown]
  - Lower gastrointestinal haemorrhage [Unknown]
  - Rectal haemorrhage [Unknown]
  - Melaena [Unknown]
